FAERS Safety Report 7321594-2 (Version None)
Quarter: 2011Q1

REPORT INFORMATION
  Report Type: 
  Country: None (occurrence: None)
  Receive Date: 20110228
  Receipt Date: 20100629
  Transmission Date: 20110831
  Serious: No
  Sender: FDA-Public Use
  Company Number: A0869330A

PATIENT

DRUGS (2)
  1. SUMATRIPTAN SUCCINATE [Suspect]
     Route: 048
  2. VALACYCLOVIR HYDROCHLORIDE [Suspect]
     Route: 048

REACTIONS (2)
  - INFECTION [None]
  - DRUG INEFFECTIVE [None]
